FAERS Safety Report 7218727-5 (Version None)
Quarter: 2011Q1

REPORT INFORMATION
  Report Type: 
  Country: None (occurrence: None)
  Receive Date: 20110110
  Receipt Date: 20110105
  Transmission Date: 20110831
  Serious: Yes (Death, Hospitalization)
  Sender: FDA-Public Use
  Company Number: PT-BAXTER-2011BH000326

PATIENT
  Age: 61 Year
  Sex: Female

DRUGS (12)
  1. EXTRANEAL [Suspect]
     Route: 033
     Dates: end: 20101226
  2. EXTRANEAL [Suspect]
     Route: 033
     Dates: start: 20101226, end: 20110103
  3. PHYSIOSOL IN PLASTIC CONTAINER [Suspect]
     Route: 033
     Dates: start: 20101226, end: 20110103
  4. PHYSIOSOL IN PLASTIC CONTAINER [Suspect]
     Route: 033
     Dates: end: 20101226
  5. PHYSIOSOL IN PLASTIC CONTAINER [Suspect]
     Route: 033
     Dates: start: 20101226, end: 20110103
  6. NUTRINEAL [Suspect]
     Indication: PERITONEAL DIALYSIS
     Route: 033
     Dates: end: 20101226
  7. NUTRINEAL [Suspect]
     Route: 033
     Dates: end: 20101226
  8. EXTRANEAL [Suspect]
     Indication: PERITONEAL DIALYSIS
     Route: 033
     Dates: end: 20101226
  9. EXTRANEAL [Suspect]
     Route: 033
     Dates: start: 20101226, end: 20110103
  10. NUTRINEAL [Suspect]
     Route: 033
     Dates: start: 20101226, end: 20110103
  11. PHYSIOSOL IN PLASTIC CONTAINER [Suspect]
     Indication: PERITONEAL DIALYSIS
     Route: 033
     Dates: end: 20101226
  12. NUTRINEAL [Suspect]
     Route: 033
     Dates: start: 20101226, end: 20110103

REACTIONS (1)
  - ISCHAEMIC STROKE [None]
